FAERS Safety Report 7611413-9 (Version None)
Quarter: 2011Q3

REPORT INFORMATION
  Report Type: 
  Country: None (occurrence: None)
  Receive Date: 20110715
  Receipt Date: 20110707
  Transmission Date: 20111222
  Serious: Yes (Death)
  Sender: FDA-Public Use
  Company Number: US-ROCHE-788193

PATIENT
  Sex: Male
  Weight: 86 kg

DRUGS (4)
  1. PEGINTERFERON ALFA-2A [Suspect]
     Route: 058
     Dates: start: 20110117
  2. IBUPROFEN [Concomitant]
     Indication: HEADACHE
     Route: 048
     Dates: start: 20110504, end: 20110504
  3. RIBAVIRIN [Suspect]
     Route: 065
     Dates: start: 20110117
  4. BLINDED ACH-0141625 (HCV NS3/4A INHIBITOR) [Suspect]
     Route: 048

REACTIONS (1)
  - MYOCARDIAL INFARCTION [None]
